FAERS Safety Report 7039501-9 (Version None)
Quarter: 2010Q4

REPORT INFORMATION
  Report Type: 
  Country: None (occurrence: None)
  Receive Date: 20101001
  Receipt Date: 20100923
  Transmission Date: 20110411
  Serious: Yes (Other)
  Sender: FDA-Public Use
  Company Number: 019253

PATIENT
  Age: 16 Year
  Sex: Female
  Weight: 46 kg

DRUGS (3)
  1. VIMPAT [Suspect]
     Indication: EPILEPSY
     Dosage: (50 MG BID ORAL)
     Route: 048
     Dates: start: 20100607, end: 20100919
  2. DEPAKINE CHRONO /01294701/ [Concomitant]
  3. TRILEPTAL [Concomitant]

REACTIONS (1)
  - LEUKOPENIA [None]
